FAERS Safety Report 15618019 (Version 1)
Quarter: 2018Q4

REPORT INFORMATION
  Report Type: Report from Study
  Country: US (occurrence: US)
  Receive Date: 20181114
  Receipt Date: 20181114
  Transmission Date: 20190205
  Serious: Yes (Other)
  Sender: FDA-Public Use
  Company Number: US-GILEAD-2018-0373268

PATIENT
  Age: 30 Year
  Sex: Female

DRUGS (1)
  1. AZTREONAM LYSINE [Suspect]
     Active Substance: AZTREONAM LYSINE
     Indication: CYSTIC FIBROSIS
     Dosage: , 75 MG, TID, 28 DAYS THEN 28 DAYS OFF
     Route: 055
     Dates: start: 20140508

REACTIONS (3)
  - Gastric disorder [Unknown]
  - Cystic fibrosis [Unknown]
  - Product dose omission [Unknown]
